FAERS Safety Report 20433641 (Version 1)
Quarter: 2022Q1

REPORT INFORMATION
  Report Type: Other
  Country: US (occurrence: None)
  Receive Date: 20220205
  Receipt Date: 20220205
  Transmission Date: 20220424
  Serious: Yes (Death)
  Sender: FDA-Public Use
  Company Number: US-ROCHE-3018988

PATIENT
  Sex: Male

DRUGS (2)
  1. CELLCEPT [Suspect]
     Active Substance: MYCOPHENOLATE MOFETIL
     Indication: Interstitial lung disease
     Dosage: TAKE 5.7 ML BY MOUTH 2 TIMES DAILY
     Route: 048
  2. CELLCEPT [Suspect]
     Active Substance: MYCOPHENOLATE MOFETIL
     Indication: Systemic scleroderma

REACTIONS (2)
  - Death [Fatal]
  - Off label use [Unknown]
